FAERS Safety Report 17518529 (Version 1)
Quarter: 2020Q1

REPORT INFORMATION
  Report Type: Spontaneous
  Country: CN (occurrence: CN)
  Receive Date: 20200310
  Receipt Date: 20200310
  Transmission Date: 20200409
  Serious: Yes (Other)
  Sender: FDA-Public Use
  Company Number: CN-ROCHE-2565411

PATIENT
  Age: 51 Year
  Sex: Male
  Weight: 79 kg

DRUGS (7)
  1. CYCLOPHOSPHAMIDE. [Concomitant]
     Active Substance: CYCLOPHOSPHAMIDE
     Indication: MANTLE CELL LYMPHOMA
     Dosage: ON DAY 2
     Route: 041
     Dates: start: 20191209
  2. BORTEZOMIB. [Concomitant]
     Active Substance: BORTEZOMIB
     Indication: MANTLE CELL LYMPHOMA
     Dosage: ON DAY 1, DAY 4, DAY 8 AND DAY 11
     Route: 058
     Dates: start: 20191209
  3. LIPOSOMAL DOXORUBICIN HYDROCHLORIDE [Concomitant]
     Active Substance: DOXORUBICIN HYDROCHLORIDE
     Indication: MANTLE CELL LYMPHOMA
     Dosage: ON DAY 2
     Route: 041
     Dates: start: 20191209
  4. TRIPTERYGIUM WILFORDII [Concomitant]
     Active Substance: HERBALS
     Dosage: ON DAY 2
     Route: 041
     Dates: start: 20191209
  5. MABTHERA [Suspect]
     Active Substance: RITUXIMAB
     Indication: MANTLE CELL LYMPHOMA
     Dosage: ON DAY 1, DAY 0
     Route: 065
     Dates: end: 20191208
  6. PREDNISONE. [Concomitant]
     Active Substance: PREDNISONE
     Dosage: DAY 2-DAY 6
     Route: 048
     Dates: start: 20191209
  7. PREDNISONE. [Concomitant]
     Active Substance: PREDNISONE
     Indication: MANTLE CELL LYMPHOMA
     Route: 065
     Dates: start: 2019

REACTIONS (10)
  - Pyrexia [Unknown]
  - Diarrhoea [Recovered/Resolved]
  - Off label use [Unknown]
  - Pulmonary oedema [Unknown]
  - Bone marrow failure [Unknown]
  - Intentional product use issue [Unknown]
  - Tachycardia [Unknown]
  - Herpes zoster [Unknown]
  - Tachypnoea [Recovered/Resolved]
  - Fat tissue increased [Unknown]

NARRATIVE: CASE EVENT DATE: 201912
